FAERS Safety Report 9798583 (Version 1)
Quarter: 2014Q1

REPORT INFORMATION
  Report Type: Spontaneous
  Country: US (occurrence: None)
  Receive Date: 20140102
  Receipt Date: 20140102
  Transmission Date: 20141002
  Serious: Yes (Disabling)
  Sender: FDA-Public Use
  Company Number: None

PATIENT
  Age: 61 Year
  Sex: Female
  Weight: 42.8 kg

DRUGS (2)
  1. BEVACIZUMAB [Suspect]
     Indication: LUNG NEOPLASM MALIGNANT
     Route: 042
  2. BEVACIZUMAB [Suspect]
     Indication: BREAST CANCER
     Route: 042

REACTIONS (2)
  - Grand mal convulsion [None]
  - Posterior reversible encephalopathy syndrome [None]
